FAERS Safety Report 22083400 (Version 1)
Quarter: 2023Q1

REPORT INFORMATION
  Report Type: Spontaneous
  Country: CA (occurrence: None)
  Receive Date: 20230310
  Receipt Date: 20230310
  Transmission Date: 20230417
  Serious: Yes (Other)
  Sender: FDA-Public Use
  Company Number: CA-PFIZER INC-202300097258

PATIENT
  Age: 36 Year
  Sex: Female
  Weight: 116.33 kg

DRUGS (4)
  1. METHOTREXATE [Suspect]
     Active Substance: METHOTREXATE
     Indication: Arthralgia
     Dosage: STRENGTH: 10 MG, WEEKLY 2 TABLETS ONCE A WEEK
     Route: 065
  2. INFLECTRA [Concomitant]
     Active Substance: INFLIXIMAB-DYYB
     Indication: Crohn^s disease
     Route: 042
     Dates: start: 20210125
  3. AZATHIOPRINE [Concomitant]
     Active Substance: AZATHIOPRINE
     Route: 065
  4. PREDNISONE [Concomitant]
     Active Substance: PREDNISONE
     Route: 065

REACTIONS (10)
  - Ulcerative keratitis [Not Recovered/Not Resolved]
  - Corneal infection [Not Recovered/Not Resolved]
  - Product use in unapproved indication [Unknown]
  - Anal skin tags [Not Recovered/Not Resolved]
  - Haemorrhoids [Not Recovered/Not Resolved]
  - Frequent bowel movements [Unknown]
  - Hyperhidrosis [Unknown]
  - Anal pruritus [Unknown]
  - Anal inflammation [Unknown]
  - Anorectal discomfort [Unknown]
